FAERS Safety Report 11908689 (Version 3)
Quarter: 2016Q1

REPORT INFORMATION
  Report Type: Report from Study
  Country: PH (occurrence: PH)
  Receive Date: 20160111
  Receipt Date: 20160122
  Transmission Date: 20160526
  Serious: No
  Sender: FDA-Public Use
  Company Number: PH-009507513-1601PHL002074

PATIENT
  Sex: Female

DRUGS (1)
  1. PEMBROLIZUMAB. [Suspect]
     Active Substance: PEMBROLIZUMAB
     Indication: METASTATIC MALIGNANT MELANOMA
     Dosage: 100 MG, Q3W
     Route: 042
     Dates: start: 20141209, end: 201512

REACTIONS (4)
  - Drug ineffective [Unknown]
  - Malignant neoplasm progression [Not Recovered/Not Resolved]
  - Vitiligo [Not Recovered/Not Resolved]
  - Dry eye [Not Recovered/Not Resolved]

NARRATIVE: CASE EVENT DATE: 201502
